FAERS Safety Report 14937907 (Version 1)
Quarter: 2018Q2

REPORT INFORMATION
  Report Type: Spontaneous
  Country: US (occurrence: US)
  Receive Date: 20180525
  Receipt Date: 20180525
  Transmission Date: 20180711
  Serious: No
  Sender: FDA-Public Use
  Company Number: PHEH2018US020331

PATIENT
  Sex: Female

DRUGS (2)
  1. LENVIMA [Suspect]
     Active Substance: LENVATINIB
     Indication: RENAL CANCER
     Dosage: 8 MG, QD
     Route: 048
  2. AFINITOR [Suspect]
     Active Substance: EVEROLIMUS
     Indication: RENAL CANCER
     Dosage: 5 MG, QD
     Route: 048

REACTIONS (6)
  - Abdominal discomfort [Unknown]
  - Oral mucosal blistering [Recovering/Resolving]
  - Vomiting [Recovered/Resolved]
  - Pruritus [Unknown]
  - Abdominal pain upper [Recovered/Resolved]
  - Full blood count decreased [Recovered/Resolved]
